FAERS Safety Report 5431668-9 (Version None)
Quarter: 2007Q3

REPORT INFORMATION
  Report Type: 
  Country: None (occurrence: None)
  Receive Date: 20070830
  Receipt Date: 20070822
  Transmission Date: 20080115
  Serious: Yes (Other)
  Sender: FDA-Public Use
  Company Number: AU-SANOFI-SYNTHELABO-A01200709480

PATIENT
  Sex: Male

DRUGS (2)
  1. CAPECITABINE [Concomitant]
     Indication: COLON CANCER METASTATIC
     Dosage: UNK
  2. ELOXATIN [Suspect]
     Indication: COLON CANCER METASTATIC
     Dosage: UNK

REACTIONS (2)
  - NEUROPATHY [None]
  - PARALYSIS [None]
